FAERS Safety Report 11910830 (Version 1)
Quarter: 2016Q1

REPORT INFORMATION
  Report Type: Spontaneous
  Country: US (occurrence: None)
  Receive Date: 20160111
  Receipt Date: 20160111
  Transmission Date: 20160526
  Serious: Yes (Life-Threatening, Other)
  Sender: FDA-Public Use
  Company Number: None

PATIENT

DRUGS (1)
  1. TAMIFLU [Suspect]
     Active Substance: OSELTAMIVIR PHOSPHATE
     Indication: INFLUENZA
     Route: 048
     Dates: start: 20160106, end: 20160106

REACTIONS (5)
  - Hallucination [None]
  - Incoherent [None]
  - Fear [None]
  - Abnormal behaviour [None]
  - Screaming [None]

NARRATIVE: CASE EVENT DATE: 20160106
